FAERS Safety Report 9932355 (Version 1)
Quarter: 2014Q1

REPORT INFORMATION
  Report Type: Spontaneous
  Country: GB (occurrence: None)
  Receive Date: 20140226
  Receipt Date: 20140226
  Transmission Date: 20141002
  Serious: Yes (Disabling, Other)
  Sender: FDA-Public Use
  Company Number: 2014-000457

PATIENT
  Age: 47 Year
  Sex: Female
  Weight: 64 kg

DRUGS (5)
  1. DORYX [Suspect]
     Indication: EYE INFLAMMATION
     Route: 048
     Dates: start: 20130101
  2. LEVOTHYROXINE SODIUM (LEVOTHYROXINE SODIUM) [Concomitant]
  3. LIOTHYRONINE SODIUM (LIOTHYRONINE SODIUM) [Concomitant]
  4. PROGESTERONE (PROGESTERONE) [Concomitant]
  5. FEMSEVEN /00045401/ (ESTRADIOL) [Concomitant]

REACTIONS (16)
  - Neuralgia [None]
  - Immobile [None]
  - Pain of skin [None]
  - Blister [None]
  - Tendonitis [None]
  - Neuralgia [None]
  - Muscle atrophy [None]
  - Pyrexia [None]
  - Chills [None]
  - Night sweats [None]
  - Muscular weakness [None]
  - Fatigue [None]
  - Dry eye [None]
  - Nasal dryness [None]
  - Sjogren^s syndrome [None]
  - Condition aggravated [None]
